FAERS Safety Report 21296945 (Version 1)
Quarter: 2022Q3

REPORT INFORMATION
  Report Type: Spontaneous
  Country: US (occurrence: None)
  Receive Date: 20220904
  Receipt Date: 20220904
  Transmission Date: 20221027
  Serious: Yes (Disabling)
  Sender: FDA-Public Use
  Company Number: None

PATIENT
  Age: 71 Year
  Sex: Male
  Weight: 94.5 kg

DRUGS (4)
  1. EVUSHELD [Suspect]
     Active Substance: CILGAVIMAB\TIXAGEVIMAB
     Indication: COVID-19 prophylaxis
     Dates: start: 20220506, end: 20220506
  2. ELIQUIS [Concomitant]
     Active Substance: APIXABAN
  3. VENETOCLAX [Concomitant]
     Active Substance: VENETOCLAX
  4. METOPROLOL [Concomitant]
     Active Substance: METOPROLOL

REACTIONS (2)
  - Atrial fibrillation [None]
  - Product use complaint [None]

NARRATIVE: CASE EVENT DATE: 20220508
